FAERS Safety Report 8213384-3 (Version None)
Quarter: 2012Q1

REPORT INFORMATION
  Report Type: 
  Country: None (occurrence: None)
  Receive Date: 20120315
  Receipt Date: 20120227
  Transmission Date: 20120608
  Serious: Yes (Life-Threatening)
  Sender: FDA-Public Use
  Company Number: CHPA2012US004836

PATIENT
  Sex: Female

DRUGS (1)
  1. VOLTAREN [Suspect]
     Indication: BACK PAIN
     Dosage: UNK, UNK
     Route: 061

REACTIONS (5)
  - CRYING [None]
  - OFF LABEL USE [None]
  - DISEASE RECURRENCE [None]
  - PAIN [None]
  - THERAPEUTIC RESPONSE UNEXPECTED [None]
